FAERS Safety Report 4814896-2 (Version None)
Quarter: 2005Q4

REPORT INFORMATION
  Report Type: 
  Country: None (occurrence: None)
  Receive Date: 20051028
  Receipt Date: 20051003
  Transmission Date: 20060501
  Serious: Yes (Hospitalization)
  Sender: FDA-Public Use
  Company Number: AU-ROCHE-419682

PATIENT
  Age: 67 Year
  Sex: Male
  Weight: 91 kg

DRUGS (5)
  1. CAPECITABINE [Suspect]
     Dosage: ADMINISTERED ON DAYS 1 - 14 EVERY THREE WEEKS.
     Route: 048
  2. CAPECITABINE [Suspect]
     Dosage: ADMINISTERED ON DAYS 1 TO 14.
     Route: 048
     Dates: start: 20051012
  3. BEVACIZUMAB [Suspect]
     Route: 042
  4. MITOMYCIN [Suspect]
     Route: 065
  5. MITOMYCIN [Suspect]
     Route: 065

REACTIONS (5)
  - DIARRHOEA [None]
  - GASTROINTESTINAL INFLAMMATION [None]
  - HAEMATOTOXICITY [None]
  - PYREXIA [None]
  - VOMITING [None]
